FAERS Safety Report 21638476 (Version 3)
Quarter: 2024Q2

REPORT INFORMATION
  Report Type: Spontaneous
  Country: JP (occurrence: JP)
  Receive Date: 20221124
  Receipt Date: 20240604
  Transmission Date: 20240716
  Serious: Yes (Death, Other)
  Sender: FDA-Public Use
  Company Number: JP-TAKEDA-2022TJP077753

PATIENT
  Age: 68 Year
  Sex: Male
  Weight: 63 kg

DRUGS (4)
  1. TEDUGLUTIDE [Suspect]
     Active Substance: TEDUGLUTIDE
     Indication: Short-bowel syndrome
     Dosage: 300 MILLIGRAM, QD
     Route: 058
     Dates: start: 20220830
  2. TEDUGLUTIDE [Suspect]
     Active Substance: TEDUGLUTIDE
     Indication: Short-bowel syndrome
     Dosage: 300 MILLIGRAM, QD
     Route: 058
     Dates: start: 20220830
  3. TEDUGLUTIDE [Suspect]
     Active Substance: TEDUGLUTIDE
     Indication: Short-bowel syndrome
     Dosage: 300 MILLIGRAM, QD
     Route: 058
     Dates: start: 20220830
  4. TEDUGLUTIDE [Suspect]
     Active Substance: TEDUGLUTIDE
     Indication: Short-bowel syndrome
     Dosage: 300 MILLIGRAM, QD
     Route: 058
     Dates: start: 20220830

REACTIONS (7)
  - Septic shock [Fatal]
  - Gastrointestinal mucosal disorder [Unknown]
  - Portal hypertension [Unknown]
  - Oesophageal intramural haematoma [Unknown]
  - Gastric mucosal lesion [Unknown]
  - Bacterial translocation [Unknown]
  - Therapeutic response decreased [Unknown]
